FAERS Safety Report 4416096-7 (Version None)
Quarter: 2004Q3

REPORT INFORMATION
  Report Type: 
  Country: None (occurrence: None)
  Receive Date: 20040802
  Receipt Date: 20040723
  Transmission Date: 20050211
  Serious: Yes (Hospitalization, Disabling, Other)
  Sender: FDA-Public Use
  Company Number: 2004-05-1814

PATIENT
  Age: 69 Year
  Sex: Male
  Weight: 70 kg

DRUGS (3)
  1. VIRAFERONPEG [Suspect]
     Indication: HEPATITIS C
     Dosage: 120UG QW SUBCUTANEOUS
     Route: 058
     Dates: start: 20030930, end: 20031106
  2. REBETOL [Suspect]
     Indication: HEPATITIS C
     Dosage: 200MG QD ORAL
     Route: 048
     Dates: start: 20030930
  3. GLIMEPIRIDE [Concomitant]

REACTIONS (5)
  - EYE EXCISION [None]
  - NEUTROPENIA [None]
  - PANOPHTHALMITIS [None]
  - SEPTIC SHOCK [None]
  - STAPHYLOCOCCAL SEPSIS [None]
